FAERS Safety Report 9935005 (Version 1)
Quarter: 2014Q1

REPORT INFORMATION
  Report Type: Spontaneous
  Country: US (occurrence: US)
  Receive Date: 20140228
  Receipt Date: 20140228
  Transmission Date: 20141002
  Serious: Yes (Other)
  Sender: FDA-Public Use
  Company Number: US-JNJFOC-20140212437

PATIENT
  Age: 5 Year
  Sex: Female

DRUGS (6)
  1. DOXORUBICIN [Suspect]
     Indication: NEUROBLASTOMA
     Dosage: 6 CYCLES. CUMULATIVE DOSAGE WAS 300 MG/M^2
     Route: 042
  2. CYCLOPHOSPHAMIDE [Suspect]
     Indication: NEUROBLASTOMA
     Dosage: CUMULATIVE DOSAGE WAS 16,800 MG/M^2
     Route: 065
  3. VINCRISTINE [Suspect]
     Indication: NEUROBLASTOMA
     Route: 065
  4. CISPLATIN [Suspect]
     Indication: NEUROBLASTOMA
     Dosage: CUMULATIVE DOSAGE WAS 400 MG/M^2
     Route: 065
  5. ETOPOSIDE [Suspect]
     Indication: NEUROBLASTOMA
     Dosage: CUMULATIVE DOSAGE WAS 1200 MG/M^2
     Route: 065
  6. RADIOTHERAPY [Suspect]
     Indication: NEUROBLASTOMA
     Dosage: 2,100 CGY TO RIGHT ADRENAL, SKULL, LEFT NECK, LEFT SUPERIOR MEDIASTINUM
     Route: 065

REACTIONS (4)
  - Acute myeloid leukaemia [Recovered/Resolved]
  - Myelodysplastic syndrome [Recovered/Resolved]
  - Thrombocytopenia [Recovered/Resolved]
  - Off label use [Unknown]
